FAERS Safety Report 8570178-7 (Version None)
Quarter: 2012Q3

REPORT INFORMATION
  Report Type: 
  Country: None (occurrence: None)
  Receive Date: 20120803
  Receipt Date: 20120720
  Transmission Date: 20120928
  Serious: No
  Sender: FDA-Public Use
  Company Number: US-PFIZER INC-2012137316

PATIENT
  Age: 47 Year
  Sex: Male

DRUGS (3)
  1. NEURONTIN [Suspect]
     Dosage: 600 MG, THREE TIMES PRN
  2. LATUDA [Concomitant]
     Dosage: UNK
  3. FANAPT [Concomitant]

REACTIONS (1)
  - NO ADVERSE EVENT [None]
